FAERS Safety Report 8134535-5 (Version None)
Quarter: 2012Q1

REPORT INFORMATION
  Report Type: 
  Country: None (occurrence: None)
  Receive Date: 20120214
  Receipt Date: 20120213
  Transmission Date: 20120608
  Serious: Yes (Other)
  Sender: FDA-Public Use
  Company Number: ES-PFIZER INC-2012031744

PATIENT
  Age: 24 Year
  Sex: Male

DRUGS (2)
  1. NEURONTIN [Suspect]
     Indication: BURNING SENSATION
     Dosage: 300 MG, 2X/DAY
     Route: 048
     Dates: start: 20120202, end: 20120204
  2. DIAZEPAM [Concomitant]

REACTIONS (4)
  - SWELLING FACE [None]
  - ERYTHEMA [None]
  - VASODILATATION [None]
  - LIP SWELLING [None]
